FAERS Safety Report 6490827-7 (Version None)
Quarter: 2009Q4

REPORT INFORMATION
  Report Type: 
  Country: None (occurrence: None)
  Receive Date: 20091204
  Receipt Date: 20091123
  Transmission Date: 20100525
  Serious: Yes (Hospitalization)
  Sender: FDA-Public Use
  Company Number: 2009029225

PATIENT
  Age: 47 Year
  Sex: Female
  Weight: 83.1 kg

DRUGS (17)
  1. PROVIGIL [Suspect]
     Indication: FATIGUE
     Dosage: 100 MG (100 MG, 1 IN 1 D), ORAL
     Route: 048
     Dates: start: 20030101
  2. METHADONE        (METHADONE) [Suspect]
     Indication: PAIN
     Dosage: 5 MG ( 5 MG, 1 IN 1 AS REQUIRED) ORAL 80 MG (20 MG, 2 IN 12 HR), ORAL
     Route: 048
  3. CLONAZEPAM [Suspect]
     Indication: ANXIETY
     Dosage: 1 MG (0.5 MG, 2 IN 1 D)
     Dates: start: 20081022
  4. IMC-1121B        (INVESTIGATIONAL DRUG) [Suspect]
     Indication: MALIGNANT MELANOMA
     Dosage: INTRAVENOUS
     Route: 042
     Dates: start: 20080801, end: 20080924
  5. SEROQUEL [Suspect]
     Dosage: 200 MG (200 MG, 1 IN 1 D), ORAL
     Route: 048
  6. FLUOXETINE [Concomitant]
  7. GLUCOVANCE [Concomitant]
  8. PREVACID [Concomitant]
  9. SENOKOT (SENNOSIDE A+B, DOCUSATE SODIUM) [Concomitant]
  10. TOPROL-XL [Concomitant]
  11. HYDROCODONE (HYDROCODONE) [Concomitant]
  12. HYDROMORPHONE HCL [Concomitant]
  13. LISINOPRIL [Concomitant]
  14. NEXIUM [Concomitant]
  15. METOCLOPRAMIDE HC1 (METOCLPRAMIDE) [Concomitant]
  16. DOCUSATE SODIUM (DOCUSATE SODIUM) [Concomitant]
  17. ANTIEMETIC (ANTIEMETICS AND ANTINAUSEANTS) [Concomitant]

REACTIONS (20)
  - BACK PAIN [None]
  - BLOOD ALKALINE PHOSPHATASE INCREASED [None]
  - CONFUSIONAL STATE [None]
  - DECREASED APPETITE [None]
  - DEPRESSION [None]
  - DYSARTHRIA [None]
  - DYSGEUSIA [None]
  - FATIGUE [None]
  - HALLUCINATIONS, MIXED [None]
  - INCORRECT DOSE ADMINISTERED [None]
  - INSOMNIA [None]
  - LETHARGY [None]
  - MENTAL STATUS CHANGES [None]
  - MOOD ALTERED [None]
  - NAUSEA [None]
  - NECK INJURY [None]
  - NEUTROPHIL PERCENTAGE INCREASED [None]
  - SEDATION [None]
  - SOMNOLENCE [None]
  - WEIGHT DECREASED [None]
